FAERS Safety Report 8386586-3 (Version None)
Quarter: 2012Q2

REPORT INFORMATION
  Report Type: 
  Country: None (occurrence: None)
  Receive Date: 20120525
  Receipt Date: 20111114
  Transmission Date: 20120825
  Serious: No
  Sender: FDA-Public Use
  Company Number: US-GLAXOSMITHKLINE-A0953026A

PATIENT
  Age: 75 Year
  Sex: Female

DRUGS (8)
  1. NEXIUM [Concomitant]
  2. CALCIUM CARBONATE [Concomitant]
  3. BIOTIN [Concomitant]
  4. GLUCOSAMINE [Concomitant]
  5. VESICARE [Concomitant]
  6. VERAMYST [Suspect]
     Indication: PRODUCT USED FOR UNKNOWN INDICATION
     Dosage: 2SPR PER DAY
     Route: 045
     Dates: start: 20110701, end: 20111001
  7. SIMVASTATIN [Concomitant]
  8. HYDROCHLOROTHIAZIDE [Concomitant]

REACTIONS (2)
  - PRODUCT QUALITY ISSUE [None]
  - DRUG INEFFECTIVE [None]
